FAERS Safety Report 7024827-5 (Version None)
Quarter: 2010Q4

REPORT INFORMATION
  Report Type: 
  Country: None (occurrence: None)
  Receive Date: 20101001
  Receipt Date: 20100924
  Transmission Date: 20110411
  Serious: Yes (Other)
  Sender: FDA-Public Use
  Company Number: US-PFIZER INC-2010122681

PATIENT
  Sex: Female

DRUGS (7)
  1. ZITHROMAX [Suspect]
     Dosage: 250 MG, DAILY
     Route: 048
     Dates: start: 20100917, end: 20100924
  2. ZITHROMAX [Suspect]
     Dosage: 250 MG, 1X/DAY
  3. LIPITOR [Suspect]
     Indication: BLOOD CHOLESTEROL ABNORMAL
     Dosage: 10 MG, EVERY OTHER DAY
     Route: 048
  4. METFORMIN [Concomitant]
     Indication: DIABETES MELLITUS
     Dosage: 500 MG, 2X/DAY
  5. LISINOPRIL [Concomitant]
     Indication: HYPERTENSION
     Dosage: 10 MG, DAILY
  6. SYNTHROID [Concomitant]
     Indication: THYROID DISORDER
     Dosage: 0.125 MG, DAILY
  7. DITROPAN [Concomitant]
     Indication: BLADDER SPASM
     Dosage: 5 MG, DAILY

REACTIONS (3)
  - DEAFNESS [None]
  - INAPPROPRIATE SCHEDULE OF DRUG ADMINISTRATION [None]
  - TINNITUS [None]
